FAERS Safety Report 16548743 (Version 1)
Quarter: 2019Q3

REPORT INFORMATION
  Report Type: Spontaneous
  Country: US (occurrence: US)
  Receive Date: 20190709
  Receipt Date: 20190709
  Transmission Date: 20191004
  Serious: No
  Sender: FDA-Public Use
  Company Number: US-SA-2019SA182149

PATIENT
  Sex: Female

DRUGS (1)
  1. UNISOM SLEEPTABS [Suspect]
     Active Substance: DOXYLAMINE SUCCINATE
     Dosage: UNK UNK, UNK

REACTIONS (4)
  - Dizziness [Unknown]
  - Drug withdrawal syndrome [Unknown]
  - Malaise [Unknown]
  - Nausea [Unknown]
